FAERS Safety Report 18578374 (Version 1)
Quarter: 2020Q4

REPORT INFORMATION
  Report Type: Spontaneous
  Country: US (occurrence: US)
  Receive Date: 20201202
  Receipt Date: 20201202
  Transmission Date: 20210114
  Serious: Yes (Hospitalization)
  Sender: FDA-Public Use
  Company Number: None

PATIENT
  Age: 57 Year
  Sex: Male
  Weight: 256 kg

DRUGS (1)
  1. GEMFIBROZIL (GEMFIBROZIL 600MG CAP) [Suspect]
     Active Substance: GEMFIBROZIL
     Indication: HYPERLIPIDAEMIA
     Route: 048
     Dates: start: 20190620, end: 20190909

REACTIONS (1)
  - Myalgia [None]

NARRATIVE: CASE EVENT DATE: 20190909
